FAERS Safety Report 6128166-6 (Version None)
Quarter: 2009Q1

REPORT INFORMATION
  Report Type: 
  Country: None (occurrence: None)
  Receive Date: 20090323
  Receipt Date: 20090312
  Transmission Date: 20090719
  Serious: Yes (Hospitalization)
  Sender: FDA-Public Use
  Company Number: US-JNJFOC-20090303572

PATIENT
  Sex: Female

DRUGS (6)
  1. TRAMADOL HCL [Suspect]
     Indication: BACK PAIN
     Route: 065
  2. RIBAVIRIN [Suspect]
     Indication: HEPATITIS C
     Route: 065
  3. PEGASYS [Suspect]
     Indication: HEPATITIS C VIRUS TEST
  4. MECLIZINE [Suspect]
     Indication: TINNITUS
     Route: 065
  5. LEXAPRO [Suspect]
     Indication: DEPRESSION
     Route: 065
  6. TRAZODONE HCL [Suspect]
     Indication: DEPRESSION
     Route: 065

REACTIONS (4)
  - ANAEMIA [None]
  - BLADDER NEOPLASM [None]
  - DYSTONIA [None]
  - PHARYNGEAL OEDEMA [None]
